FAERS Safety Report 19805065 (Version 1)
Quarter: 2021Q3

REPORT INFORMATION
  Report Type: Spontaneous
  Country: US (occurrence: US)
  Receive Date: 20210908
  Receipt Date: 20210908
  Transmission Date: 20211014
  Serious: No
  Sender: FDA-Public Use
  Company Number: US-SA-2021SA294747

PATIENT
  Sex: Female

DRUGS (1)
  1. DUPIXENT [Suspect]
     Active Substance: DUPILUMAB
     Indication: ILLNESS
     Dosage: 200 MG, QOW
     Route: 058

REACTIONS (3)
  - Condition aggravated [Unknown]
  - Product use issue [Unknown]
  - Product use in unapproved indication [Unknown]
